FAERS Safety Report 6219726-2 (Version None)
Quarter: 2009Q2

REPORT INFORMATION
  Report Type: 
  Country: None (occurrence: None)
  Receive Date: 20090609
  Receipt Date: 20090408
  Transmission Date: 20091009
  Serious: Yes (Death, Other)
  Sender: FDA-Public Use
  Company Number: US-PFIZER INC-2009152128

PATIENT
  Sex: Female
  Weight: 57.2 kg

DRUGS (5)
  1. XALATAN [Suspect]
     Indication: GLAUCOMA
     Dosage: 1 GTT, 1X/DAY
     Dates: start: 20041104, end: 20060801
  2. XALATAN [Suspect]
     Dosage: UNK
     Dates: start: 20081113
  3. ASPIRIN [Concomitant]
     Indication: ARTHRITIS
     Dosage: UNK
  4. NUTRITIONAL SUPPLEMENT [Concomitant]
     Dosage: UNK
  5. VITAMINS [Concomitant]
     Dosage: UNK

REACTIONS (2)
  - DEATH [None]
  - GLAUCOMA [None]
